FAERS Safety Report 5298116-3 (Version None)
Quarter: 2007Q2

REPORT INFORMATION
  Report Type: 
  Country: None (occurrence: None)
  Receive Date: 20070416
  Receipt Date: 20070403
  Transmission Date: 20071010
  Serious: Yes (Other)
  Sender: FDA-Public Use
  Company Number: JP-ROCHE-490693

PATIENT
  Age: 29 Year
  Sex: Female

DRUGS (3)
  1. TAMIFLU [Suspect]
     Indication: INFLUENZA
     Route: 048
     Dates: start: 20070304
  2. CALONAL [Suspect]
     Indication: PYREXIA
     Route: 048
     Dates: start: 20070304
  3. ALESION [Suspect]
     Indication: PYREXIA
     Route: 048
     Dates: start: 20070304

REACTIONS (4)
  - ABNORMAL BEHAVIOUR [None]
  - CONTUSION [None]
  - LOSS OF CONSCIOUSNESS [None]
  - PSYCHIATRIC SYMPTOM [None]
